FAERS Safety Report 18106621 (Version 1)
Quarter: 2020Q3

REPORT INFORMATION
  Report Type: Report from Study
  Country: US (occurrence: US)
  Receive Date: 20200803
  Receipt Date: 20200803
  Transmission Date: 20201103
  Serious: Yes (Hospitalization)
  Sender: FDA-Public Use
  Company Number: US-EXELIXIS-CABO-20026972

PATIENT
  Age: 61 Year
  Sex: Male

DRUGS (3)
  1. TESTOPEL [Concomitant]
     Active Substance: TESTOSTERONE
     Indication: TESTICULAR FAILURE
     Dosage: UNK
  2. CABOMETYX [Suspect]
     Active Substance: CABOZANTINIB S-MALATE
     Dosage: 40 MG, QD
     Route: 048
  3. CABOMETYX [Suspect]
     Active Substance: CABOZANTINIB S-MALATE
     Indication: RENAL CANCER
     Dosage: 60 MG, QD
     Route: 048
     Dates: start: 20200114

REACTIONS (9)
  - Diarrhoea [Unknown]
  - Cholelithiasis [Unknown]
  - Tongue disorder [Recovering/Resolving]
  - Abdominal discomfort [Unknown]
  - Furuncle [Not Recovered/Not Resolved]
  - Pancreatitis [Unknown]
  - Dry skin [Recovering/Resolving]
  - Nausea [Unknown]
  - Skin exfoliation [Recovering/Resolving]

NARRATIVE: CASE EVENT DATE: 202001
